FAERS Safety Report 15984900 (Version 1)
Quarter: 2019Q1

REPORT INFORMATION
  Report Type: Spontaneous
  Country: US (occurrence: US)
  Receive Date: 20190219
  Receipt Date: 20190219
  Transmission Date: 20190418
  Serious: Yes (Other)
  Sender: FDA-Public Use
  Company Number: None

PATIENT
  Age: 62 Year
  Sex: Female
  Weight: 98.51 kg

DRUGS (6)
  1. EFFEXOR XR [Concomitant]
     Active Substance: VENLAFAXINE HYDROCHLORIDE
  2. LORAZEPAM. [Concomitant]
     Active Substance: LORAZEPAM
  3. VITAMIN D [Concomitant]
     Active Substance: CHOLECALCIFEROL
  4. SIMVASTATIN. [Concomitant]
     Active Substance: SIMVASTATIN
  5. RISPERIDONE. [Concomitant]
     Active Substance: RISPERIDONE
  6. IBRANCE [Suspect]
     Active Substance: PALBOCICLIB
     Indication: BREAST CANCER
     Route: 048
     Dates: start: 20160114

REACTIONS (1)
  - Disease progression [None]
